FAERS Safety Report 6018790-3 (Version None)
Quarter: 2008Q4

REPORT INFORMATION
  Report Type: 
  Country: None (occurrence: None)
  Receive Date: 20081222
  Receipt Date: 20081205
  Transmission Date: 20090506
  Serious: Yes (Death)
  Sender: FDA-Public Use
  Company Number: KV200800983

PATIENT
  Age: 77 Year
  Sex: Male

DRUGS (2)
  1. ISOSORBIDE MONONITRATE [Suspect]
     Indication: HEART RATE IRREGULAR
     Dosage: 60 MG, QD, ORAL
     Route: 048
     Dates: start: 20070101, end: 20081001
  2. PROPAFENONE HYDROCHLORIDE [Suspect]
     Indication: HEART RATE IRREGULAR
     Dosage: 150 MG, TID, ORAL
     Route: 048
     Dates: start: 20070101, end: 20081001

REACTIONS (6)
  - CARDIAC ARREST [None]
  - MALAISE [None]
  - MUSCULOSKELETAL PAIN [None]
  - MYOCARDIAL INFARCTION [None]
  - PAIN IN EXTREMITY [None]
  - PRODUCT QUALITY ISSUE [None]
